FAERS Safety Report 8498142-7 (Version None)
Quarter: 2012Q3

REPORT INFORMATION
  Report Type: 
  Country: None (occurrence: None)
  Receive Date: 20120709
  Receipt Date: 20120619
  Transmission Date: 20120928
  Serious: No
  Sender: FDA-Public Use
  Company Number: US-AMGEN-USASP2012037984

PATIENT
  Sex: Female

DRUGS (5)
  1. ENBREL [Suspect]
     Indication: RHEUMATOID ARTHRITIS
     Dosage: 50 MG, QWK
     Dates: start: 20100801
  2. MULTIVITAMIN                       /00097801/ [Concomitant]
     Dosage: UNK
  3. SULFASALAZINE [Concomitant]
     Dosage: UNK
  4. SYNTHROID [Concomitant]
     Dosage: UNK
  5. MINOCYCLINE HCL [Concomitant]
     Dosage: UNK

REACTIONS (2)
  - HYPOACUSIS [None]
  - EAR PAIN [None]
